FAERS Safety Report 4285589-8 (Version None)
Quarter: 2004Q1

REPORT INFORMATION
  Report Type: 
  Country: None (occurrence: None)
  Receive Date: 20040205
  Receipt Date: 20040126
  Transmission Date: 20041129
  Serious: Yes (Death, Other)
  Sender: FDA-Public Use
  Company Number: JP-BRISTOL-MYERS SQUIBB COMPANY-12486809

PATIENT
  Age: 4 Year
  Sex: Male

DRUGS (5)
  1. ETOPOSIDE [Suspect]
     Indication: PRIMITIVE NEUROECTODERMAL TUMOUR
     Dosage: 300 MG/M2 ON DAYS -6 TO -4
     Dates: start: 20010601, end: 20010601
  2. THIOTEPA [Suspect]
     Indication: PRIMITIVE NEUROECTODERMAL TUMOUR
     Dosage: 270 MG/M2 ON DAYS -6 TO -4
     Dates: start: 20010601, end: 20010601
  3. RANIMUSTINE [Concomitant]
     Indication: PRIMITIVE NEUROECTODERMAL TUMOUR
     Dosage: 300 MG/M2 ON DAYS -6 AND -3
     Dates: start: 20010601, end: 20010601
  4. STEM CELL TRANSPLANTATION [Suspect]
     Indication: PRIMITIVE NEUROECTODERMAL TUMOUR
     Dates: start: 20010601, end: 20010601
  5. INTERFERON [Suspect]
     Indication: PRIMITIVE NEUROECTODERMAL TUMOUR
     Dosage: IU/M2
     Route: 042
     Dates: start: 20000401, end: 20010301

REACTIONS (13)
  - ANAEMIA [None]
  - CARDIAC FAILURE [None]
  - DIARRHOEA [None]
  - ENGRAFTMENT SYNDROME [None]
  - HYPOPROTEINAEMIA [None]
  - PNEUMONITIS [None]
  - PULMONARY ARTERY DILATATION [None]
  - PULMONARY EMBOLISM [None]
  - PYREXIA [None]
  - SHOCK [None]
  - STOMATITIS [None]
  - THROMBOCYTOPENIA [None]
  - TRICUSPID VALVE INCOMPETENCE [None]
